FAERS Safety Report 5002522-1 (Version None)
Quarter: 2006Q2

REPORT INFORMATION
  Report Type: 
  Country: None (occurrence: None)
  Receive Date: 20060515
  Receipt Date: 20060511
  Transmission Date: 20061013
  Serious: Yes (Hospitalization)
  Sender: FDA-Public Use
  Company Number: AU-MERCK-0605AUS00104

PATIENT
  Sex: Female

DRUGS (3)
  1. FOSAMAX [Suspect]
     Indication: BONE DISORDER
     Route: 048
     Dates: end: 19990815
  2. ESTROPIPATE [Concomitant]
     Indication: MENOPAUSAL SYMPTOMS
     Route: 065
     Dates: start: 19750101
  3. OMEPRAZOLE [Concomitant]
     Route: 065

REACTIONS (3)
  - OESOPHAGITIS [None]
  - PANCREATITIS [None]
  - PHARYNGOLARYNGEAL PAIN [None]
